FAERS Safety Report 9240370 (Version 4)
Quarter: 2015Q1

REPORT INFORMATION
  Report Type: Spontaneous
  Country: US (occurrence: US)
  Receive Date: 20130418
  Receipt Date: 20150205
  Transmission Date: 20150721
  Serious: Yes (Death, Life-Threatening, Hospitalization, Disabling, Other)
  Sender: FDA-Public Use
  Company Number: US-009507513-1304USA008233

PATIENT
  Sex: Female
  Weight: 88.89 kg

DRUGS (4)
  1. LANTUS [Concomitant]
     Active Substance: INSULIN GLARGINE
     Indication: TYPE 2 DIABETES MELLITUS
     Dosage: UNK
     Dates: start: 201012
  2. JANUMET [Suspect]
     Active Substance: METFORMIN HYDROCHLORIDE\SITAGLIPTIN PHOSPHATE
     Indication: TYPE 2 DIABETES MELLITUS
     Dosage: 50/1000 MG, BID
     Route: 048
     Dates: start: 20110702, end: 20110904
  3. VICTOZA [Suspect]
     Active Substance: LIRAGLUTIDE
     Indication: TYPE 2 DIABETES MELLITUS
     Dosage: 0.6 TO 1.8 MICROGRAM, QD
     Route: 048
     Dates: start: 20110908, end: 20120104
  4. BYETTA [Suspect]
     Active Substance: EXENATIDE
     Indication: TYPE 2 DIABETES MELLITUS
     Dosage: 10 MICROGRAM, BID
     Route: 048
     Dates: start: 20110701, end: 20110830

REACTIONS (7)
  - Transfusion [Unknown]
  - Metastases to liver [Not Recovered/Not Resolved]
  - Pulmonary oedema [Unknown]
  - Pancreatic carcinoma metastatic [Fatal]
  - Gastrostomy [Unknown]
  - Anaemia [Unknown]
  - Obstruction gastric [Unknown]

NARRATIVE: CASE EVENT DATE: 20111219
